FAERS Safety Report 16041835 (Version 1)
Quarter: 2019Q1

REPORT INFORMATION
  Report Type: Spontaneous
  Country: US (occurrence: US)
  Receive Date: 20190306
  Receipt Date: 20190306
  Transmission Date: 20190418
  Serious: No
  Sender: FDA-Public Use
  Company Number: US-AKORN PHARMACEUTICALS-2018AKN00541

PATIENT
  Age: 19 Year
  Sex: Female
  Weight: 68.93 kg

DRUGS (1)
  1. MYORISAN [Suspect]
     Active Substance: ISOTRETINOIN
     Indication: ACNE
     Dosage: 20 MG, 2X/DAY
     Route: 048
     Dates: start: 20180322, end: 20180409

REACTIONS (7)
  - Arthralgia [Not Recovered/Not Resolved]
  - Drug ineffective [Not Recovered/Not Resolved]
  - Back pain [Recovered/Resolved]
  - Secretion discharge [Recovered/Resolved]
  - Acne [Not Recovered/Not Resolved]
  - Haematochezia [Recovered/Resolved]
  - Malaise [Recovered/Resolved]

NARRATIVE: CASE EVENT DATE: 2018
